FAERS Safety Report 24095765 (Version 1)
Quarter: 2024Q3

REPORT INFORMATION
  Report Type: Spontaneous
  Country: KR (occurrence: KR)
  Receive Date: 20240716
  Receipt Date: 20240716
  Transmission Date: 20241017
  Serious: Yes (Hospitalization, Other)
  Sender: MACLEODS
  Company Number: KR-MACLEODS PHARMA-MAC2024048187

PATIENT

DRUGS (1)
  1. PROPYLTHIOURACIL [Suspect]
     Active Substance: PROPYLTHIOURACIL
     Indication: Graves^ disease
     Dosage: TOOK 100 PILLS
     Route: 065

REACTIONS (2)
  - Henoch-Schonlein purpura [Recovering/Resolving]
  - Intentional overdose [Unknown]
